FAERS Safety Report 25571053 (Version 1)
Quarter: 2025Q3

REPORT INFORMATION
  Report Type: Spontaneous
  Country: PA (occurrence: PA)
  Receive Date: 20250717
  Receipt Date: 20250717
  Transmission Date: 20251021
  Serious: Yes (Death)
  Sender: NOVARTIS
  Company Number: PA-002147023-NVSC2025PA113413

PATIENT
  Sex: Male

DRUGS (1)
  1. RIBOCICLIB [Suspect]
     Active Substance: RIBOCICLIB
     Indication: Gene mutation
     Route: 048
     Dates: start: 20250501, end: 20250711

REACTIONS (2)
  - Death [Fatal]
  - Off label use [Unknown]
